FAERS Safety Report 6344709-1 (Version None)
Quarter: 2009Q3

REPORT INFORMATION
  Report Type: 
  Country: None (occurrence: None)
  Receive Date: 20090908
  Receipt Date: 20090903
  Transmission Date: 20100115
  Serious: Yes (Death)
  Sender: FDA-Public Use
  Company Number: US-GILEAD-2009-0024107

PATIENT
  Sex: Female
  Weight: 34.958 kg

DRUGS (10)
  1. LETAIRIS [Suspect]
     Indication: PULMONARY ARTERIAL HYPERTENSION
     Route: 048
     Dates: start: 20070825, end: 20090902
  2. LISINOPRIL [Concomitant]
  3. FUROSEMIDE [Concomitant]
  4. PROCRIT [Concomitant]
  5. CYMBALTA [Concomitant]
  6. TRAZODONE [Concomitant]
  7. LEVOTHYROXINE [Concomitant]
  8. LYRICA [Concomitant]
  9. NORCO [Concomitant]
  10. PREVACID [Concomitant]

REACTIONS (1)
  - DEATH [None]
